FAERS Safety Report 6511843-2 (Version None)
Quarter: 2009Q4

REPORT INFORMATION
  Report Type: 
  Country: None (occurrence: None)
  Receive Date: 20091222
  Receipt Date: 20091215
  Transmission Date: 20100525
  Serious: Yes (Other)
  Sender: FDA-Public Use
  Company Number: DE-AMGEN-QUU380531

PATIENT
  Sex: Female

DRUGS (1)
  1. ARANESP [Suspect]
     Indication: DRUG USE FOR UNKNOWN INDICATION

REACTIONS (5)
  - DRUG ABUSE [None]
  - DRUG INEFFECTIVE [None]
  - HAEMOGLOBIN ABNORMAL [None]
  - LEUKOPENIA [None]
  - RETICULOCYTE COUNT DECREASED [None]
